FAERS Safety Report 12637930 (Version 1)
Quarter: 2016Q3

REPORT INFORMATION
  Report Type: Spontaneous
  Country: US (occurrence: US)
  Receive Date: 20160809
  Receipt Date: 20160809
  Transmission Date: 20161109
  Serious: No
  Sender: FDA-Public Use
  Company Number: US-SA-2016SA098926

PATIENT
  Age: 70 Year
  Sex: Female

DRUGS (11)
  1. LANTUS [Concomitant]
     Active Substance: INSULIN GLARGINE
  2. HUMALOG [Concomitant]
     Active Substance: INSULIN LISPRO
  3. NITROGLYCERINE [Concomitant]
     Active Substance: NITROGLYCERIN
  4. PRILOSEC [Concomitant]
     Active Substance: OMEPRAZOLE MAGNESIUM
     Dosage: DR
  5. NORCO [Concomitant]
     Active Substance: ACETAMINOPHEN\HYDROCODONE BITARTRATE
  6. ALIROCUMAB PREFILLED PEN [Concomitant]
     Active Substance: ALIROCUMAB
     Dates: start: 20160422
  7. METFORMIN [Concomitant]
     Active Substance: METFORMIN HYDROCHLORIDE
     Dosage: ER
  8. SPIRONOLACTONE. [Concomitant]
     Active Substance: SPIRONOLACTONE
  9. ASPIRIN. [Concomitant]
     Active Substance: ASPIRIN
  10. BUMETANIDE. [Concomitant]
     Active Substance: BUMETANIDE
  11. PRALUENT [Suspect]
     Active Substance: ALIROCUMAB
     Route: 058
     Dates: start: 20160422

REACTIONS (2)
  - Arthralgia [Unknown]
  - Fluid retention [Unknown]

NARRATIVE: CASE EVENT DATE: 20160512
